FAERS Safety Report 25798377 (Version 1)
Quarter: 2025Q3

REPORT INFORMATION
  Report Type: Report from Study
  Country: CO (occurrence: CO)
  Receive Date: 20250913
  Receipt Date: 20250913
  Transmission Date: 20251020
  Serious: Yes (Death, Other)
  Sender: ABBVIE
  Company Number: CO-ABBVIE-6457054

PATIENT
  Age: 56 Year
  Sex: Female
  Weight: 62 kg

DRUGS (1)
  1. VENCLEXTA [Suspect]
     Active Substance: VENETOCLAX
     Indication: Acute myeloid leukaemia
     Dosage: VENCLEXTA BOTTLE 100MG
     Route: 048
     Dates: start: 20240608, end: 20250731

REACTIONS (3)
  - Death [Fatal]
  - Bone marrow transplant [Unknown]
  - Unevaluable event [Unknown]

NARRATIVE: CASE EVENT DATE: 20250801
